FAERS Safety Report 14101473 (Version 1)
Quarter: 2017Q4

REPORT INFORMATION
  Report Type: Spontaneous
  Country: US (occurrence: US)
  Receive Date: 20171017
  Receipt Date: 20171017
  Transmission Date: 20180321
  Serious: Yes (Other)
  Sender: FDA-Public Use
  Company Number: None

PATIENT
  Age: 35 Year
  Sex: Male
  Weight: 119.25 kg

DRUGS (1)
  1. OXYCODONE HYDROCHLORIDE. [Suspect]
     Active Substance: OXYCODONE HYDROCHLORIDE
     Indication: PAIN
     Dosage: ?          QUANTITY:1 TABLET(S);?
     Route: 048

REACTIONS (8)
  - Headache [None]
  - Stupor [None]
  - Nausea [None]
  - Photophobia [None]
  - Product substitution issue [None]
  - Vision blurred [None]
  - Cycloplegia [None]
  - Drug effect incomplete [None]

NARRATIVE: CASE EVENT DATE: 20171017
